FAERS Safety Report 16767802 (Version 2)
Quarter: 2020Q1

REPORT INFORMATION
  Report Type: Spontaneous
  Country: DE (occurrence: DE)
  Receive Date: 20190903
  Receipt Date: 20200218
  Transmission Date: 20200409
  Serious: Yes (Other)
  Sender: FDA-Public Use
  Company Number: DE-MYLANLABS-2019M1081835

PATIENT
  Age: 54 Year
  Sex: Male
  Weight: 78 kg

DRUGS (24)
  1. CANDECOR [Suspect]
     Active Substance: CANDESARTAN CILEXETIL
     Indication: PRODUCT USED FOR UNKNOWN INDICATION
     Dosage: UNK
  2. CALCITRIOL. [Concomitant]
     Active Substance: CALCITRIOL
     Dosage: 2 IN MORNING
  3. CANDESARTAN CILEXETIL. [Concomitant]
     Active Substance: CANDESARTAN CILEXETIL
     Dosage: 1 EVENING
  4. RENVELA [Concomitant]
     Active Substance: SEVELAMER CARBONATE
     Dosage: UNK
  5. ACETYLSALICYLIC ACID [Concomitant]
     Active Substance: ASPIRIN
     Dosage: 1 AT MORNING
  6. NOVAMINSULFON 1 A PHARMA [Concomitant]
     Active Substance: METAMIZOLE SODIUM
     Dosage: UNK, PRN
  7. VALSARTAN DURA [Suspect]
     Active Substance: VALSARTAN
     Indication: PRODUCT USED FOR UNKNOWN INDICATION
     Dosage: 160 MILLIGRAM, QD (ONCE IN THE MORNING)
     Route: 048
     Dates: start: 2015, end: 201807
  8. NEPRESOL                           /00017902/ [Concomitant]
     Active Substance: DIHYDRALAZINE SULFATE
     Dosage: 2 EVENING
  9. DOXAZOSIN [Concomitant]
     Active Substance: DOXAZOSIN MESYLATE
     Dosage: 2 EVENING
  10. PRAVASTATIN 1A PHARMA GMBH [Concomitant]
     Dosage: 1 EVENING
  11. CPS [Concomitant]
     Dosage: UP TO 8 SACHETS PER DAY TO THE MEAL
  12. RENVELA [Concomitant]
     Active Substance: SEVELAMER CARBONATE
     Dosage: 2 IN MORNING
  13. MELPERON [Concomitant]
     Active Substance: MELPERONE
     Dosage: 1 NIGHT (FROM GP)
  14. RETACRIT                           /00928305/ [Concomitant]
     Active Substance: ERYTHROPOIETIN
     Dosage: MONDAY AND FRIDAY, INTRAVENOUS
  15. CANDESARTAN 1A PHARMA [Suspect]
     Active Substance: CANDESARTAN CILEXETIL
     Indication: PRODUCT USED FOR UNKNOWN INDICATION
     Dosage: UNK
  16. DEKRISTOL [Concomitant]
     Active Substance: CHOLECALCIFEROL
     Dosage: UNK
  17. VALSARTAN. [Suspect]
     Active Substance: VALSARTAN
     Indication: PRODUCT USED FOR UNKNOWN INDICATION
     Dosage: UNK
  18. METOPROLOL SUCCINATE. [Concomitant]
     Active Substance: METOPROLOL SUCCINATE
     Dosage: 1 EVENING
  19. VALSACOR [Suspect]
     Active Substance: VALSARTAN
     Indication: PRODUCT USED FOR UNKNOWN INDICATION
     Dosage: UNK
  20. DECORTIN [Concomitant]
     Active Substance: PREDNISONE
     Dosage: 1 AT MORNING
  21. AMLODIPIN ABZ [Concomitant]
     Dosage: 1 AT NOON
  22. BICANORM [Concomitant]
     Active Substance: SODIUM BICARBONATE
     Dosage: 2-0-2 SATURDAY AND SUNDAY
  23. DREISAVIT N [Concomitant]
     Dosage: 1 EVENING
  24. PANTOPRAZOL MICRO [Concomitant]
     Dosage: 1 MORNING 1 EVENING

REACTIONS (3)
  - Quality of life decreased [Not Recovered/Not Resolved]
  - Mental impairment [Not Recovered/Not Resolved]
  - Fear of disease [Not Recovered/Not Resolved]
